FAERS Safety Report 24094917 (Version 1)
Quarter: 2024Q3

REPORT INFORMATION
  Report Type: Spontaneous
  Country: FR (occurrence: None)
  Receive Date: 20240716
  Receipt Date: 20240716
  Transmission Date: 20241016
  Serious: Yes (Hospitalization)
  Sender: ASTRAZENECA
  Company Number: 2024A155236

PATIENT
  Age: 80 Year
  Sex: Female
  Weight: 46.7 kg

DRUGS (1)
  1. TAGRISSO [Suspect]
     Active Substance: OSIMERTINIB
     Indication: Lung adenocarcinoma
     Route: 048
     Dates: start: 20240221, end: 20240307

REACTIONS (1)
  - Subcorneal pustular dermatosis [Recovered/Resolved]

NARRATIVE: CASE EVENT DATE: 20240227
